FAERS Safety Report 25948968 (Version 1)
Quarter: 2025Q4

REPORT INFORMATION
  Report Type: Spontaneous
  Country: AU (occurrence: AU)
  Receive Date: 20251022
  Receipt Date: 20251022
  Transmission Date: 20260119
  Serious: Yes (Hospitalization)
  Sender: PFIZER
  Company Number: AU-PFIZER INC-PV202500120775

PATIENT
  Age: 78 Year
  Sex: Male
  Weight: 61.6 kg

DRUGS (27)
  1. ELRANATAMAB [Suspect]
     Active Substance: ELRANATAMAB
     Indication: Plasma cell myeloma
     Dosage: 76 MG
     Route: 058
     Dates: start: 20250728
  2. ELRANATAMAB [Suspect]
     Active Substance: ELRANATAMAB
     Dosage: CYCLE 2
     Dates: start: 20250804
  3. ELRANATAMAB [Suspect]
     Active Substance: ELRANATAMAB
     Dosage: CYCLE 6
     Dates: start: 20250908
  4. ELRANATAMAB [Suspect]
     Active Substance: ELRANATAMAB
     Dosage: UNK
     Dates: end: 20251002
  5. TADALAFIL [Concomitant]
     Active Substance: TADALAFIL
     Dosage: 5 MG, 1X/DAY (MORNING)
  6. ALLOPURINOL [Concomitant]
     Active Substance: ALLOPURINOL
     Dosage: 100 MG, 1X/DAY (EVENING)
  7. ARANESP [Concomitant]
     Active Substance: DARBEPOETIN ALFA
     Dosage: 80 UG, WEEKLY (ON MONDAYS)
     Route: 058
  8. SODIUM ACID PHOSPHATE [PHOSPHORIC ACID SODIUM] [Concomitant]
     Dosage: 500 MG (TWO DISSOLVED IN WATER IN THE MORNING)
  9. VALACYCLOVIR HYDROCHLORIDE [Concomitant]
     Active Substance: VALACYCLOVIR HYDROCHLORIDE
     Dosage: 500 MG, 1X/DAY (IN THE MORNING)
  10. BACTRIM DS [Concomitant]
     Active Substance: SULFAMETHOXAZOLE\TRIMETHOPRIM
     Dosage: UNK (HALF A TABLET IN THE MORNING)
  11. MAGNESIUM ASPARTATE [Concomitant]
     Active Substance: MAGNESIUM ASPARTATE
     Dosage: 500 MG, 1X/DAY (IN THE EVENING)
  12. ROSUVASTATIN [Concomitant]
     Active Substance: ROSUVASTATIN
     Dosage: 20 MG, 1X/DAY (IN THE EVENING)
  13. LERCANIDIPINE [Concomitant]
     Active Substance: LERCANIDIPINE
     Dosage: 10 MG, 1X/DAY (IN THE MORNING)
  14. DAPAGLIFLOZIN [Concomitant]
     Active Substance: DAPAGLIFLOZIN
     Dosage: 10 MG, 1X/DAY (IN THE EVENING)
  15. ESOMEPRAZOLE [Concomitant]
     Active Substance: ESOMEPRAZOLE
     Dosage: 40 MG, 1X/DAY (IN THE MORNING)
  16. POTASSIUM CHLORIDE [Concomitant]
     Active Substance: POTASSIUM CHLORIDE
     Dosage: 2 DF, 2X/DAY
  17. SPIRONOLACTONE [Concomitant]
     Active Substance: SPIRONOLACTONE
     Dosage: 25 MG, 1X/DAY (IN THE MORNING)
  18. SODIUM BICARBONATE [Concomitant]
     Active Substance: SODIUM BICARBONATE
     Dosage: 840 MG, 3X/DAY (TWO TABLETS)
  19. CALCITRIOL [Concomitant]
     Active Substance: CALCITRIOL
     Dosage: 0.25 UG, 1X/DAY (TWO CAPSULES IN THE MORNING)
  20. HYLO FORTE [Concomitant]
     Dosage: 0.2 %, 3X/DAY (EYE DROPS ONE DROP TO AFFECTED EYES)
  21. OXYMETAZOLINE [Concomitant]
     Active Substance: OXYMETAZOLINE
     Dosage: 0.05 %, 3X/DAY (ONE PUFF TO EACH NOSTRIL)
  22. BIOTENE (PASTE) [Concomitant]
     Active Substance: SODIUM MONOFLUOROPHOSPHATE
     Dosage: UNK (MOUTH SPRAY  TWO PUFFS DAILY IN THE MORNING)
  23. CALCIUM CARBONATE [Concomitant]
     Active Substance: CALCIUM CARBONATE
     Dosage: 600 MG, 2X/DAY (2 TABLETS)
  24. PANADOL [Concomitant]
     Active Substance: ACETAMINOPHEN
     Dosage: 500 MG, AS NEEDED (TWO TABLETS EVERY FOUR HOURS (MAXIMUM 8 PER DAY))
  25. LOPERAMIDE [Concomitant]
     Active Substance: LOPERAMIDE
     Dosage: 2 MG (ONE TO TWO CAPSULES FOUR TIMES DAILY AS NEEDED (MAXIMUM 8 PER DAY))
  26. ASPIRIN [Concomitant]
     Active Substance: ASPIRIN
     Dosage: 100 MG, 1X/DAY (IN THE MORNING)
  27. DUTASTERIDE\TAMSULOSIN [Concomitant]
     Active Substance: DUTASTERIDE\TAMSULOSIN
     Dosage: UNK (500 MG/400 MG  ONE DAILY)

REACTIONS (1)
  - Skin lesion [Recovering/Resolving]

NARRATIVE: CASE EVENT DATE: 20250804
